FAERS Safety Report 5098755-9 (Version None)
Quarter: 2006Q3

REPORT INFORMATION
  Report Type: 
  Country: None (occurrence: None)
  Receive Date: 20060907
  Receipt Date: 20060828
  Transmission Date: 20061208
  Serious: Yes (Hospitalization, Congenital Anomaly)
  Sender: FDA-Public Use
  Company Number: FR-GLAXOSMITHKLINE-B0435843A

PATIENT
  Age: 7 Day
  Sex: Female

DRUGS (9)
  1. ZIDOVUDINE [Suspect]
     Indication: ANTIVIRAL PROPHYLAXIS
     Route: 048
     Dates: start: 20060601
  2. LAMIVUDINE [Suspect]
     Indication: ANTIVIRAL PROPHYLAXIS
     Route: 065
     Dates: start: 20060601
  3. NEVIRAPINE [Suspect]
     Indication: ANTIVIRAL PROPHYLAXIS
     Route: 048
     Dates: start: 20060601, end: 20060601
  4. VIRACEPT [Suspect]
     Indication: ANTIVIRAL PROPHYLAXIS
     Dosage: 40MGK TWICE PER DAY
     Route: 048
     Dates: start: 20060601, end: 20060601
  5. COMBIVIR [Suspect]
     Indication: HIV INFECTION
     Dates: start: 20050101, end: 20060615
  6. RETROVIR [Suspect]
     Indication: HIV INFECTION
     Dates: start: 20060615, end: 20060615
  7. NORVIR [Suspect]
     Indication: HIV INFECTION
     Dates: start: 20050101, end: 20060615
  8. CRIXIVAN [Suspect]
     Indication: HIV INFECTION
     Dates: start: 20050101, end: 20060615
  9. VIRAMUNE [Suspect]
     Indication: HIV INFECTION
     Dates: start: 20050101, end: 20060615

REACTIONS (13)
  - ACCIDENTAL OVERDOSE [None]
  - ANAEMIA [None]
  - ASPHYXIA [None]
  - CAESAREAN SECTION [None]
  - CONGENITAL TRACHEOMALACIA [None]
  - CONVULSION [None]
  - DRUG EXPOSURE DURING PREGNANCY [None]
  - DYSKINESIA [None]
  - MALAISE [None]
  - MATERNAL CONDITION AFFECTING FOETUS [None]
  - MEDICATION ERROR [None]
  - NEUTROPENIA [None]
  - RESPIRATORY DISTRESS [None]
